FAERS Safety Report 13656212 (Version 1)
Quarter: 2017Q2

REPORT INFORMATION
  Report Type: Report from Study
  Country: US (occurrence: US)
  Receive Date: 20170615
  Receipt Date: 20170615
  Transmission Date: 20170830
  Serious: Yes (Death)
  Sender: FDA-Public Use
  Company Number: US-TORRENT-00002909

PATIENT
  Age: 35 Year
  Sex: Male

DRUGS (11)
  1. PROPRANOLOL HYDROCHLORIDE. [Suspect]
     Active Substance: PROPRANOLOL HYDROCHLORIDE
  2. POTASSIUM [Suspect]
     Active Substance: POTASSIUM
  3. BUSPIRONE HYDROCHLORIDE. [Suspect]
     Active Substance: BUSPIRONE HYDROCHLORIDE
  4. BENZATROPINE MESILATE [Suspect]
     Active Substance: BENZTROPINE
  5. VALPROIC ACID. [Suspect]
     Active Substance: VALPROIC ACID
  6. PAROXETINE HYDROCHLORIDE. [Suspect]
     Active Substance: PAROXETINE HYDROCHLORIDE
  7. QUETIAPINE. [Suspect]
     Active Substance: QUETIAPINE
  8. ALPRAZOLAM. [Suspect]
     Active Substance: ALPRAZOLAM
  9. PALIPERIDONE. [Suspect]
     Active Substance: PALIPERIDONE
  10. LISINOPRIL. [Suspect]
     Active Substance: LISINOPRIL
  11. SIMVASTATIN. [Suspect]
     Active Substance: SIMVASTATIN

REACTIONS (1)
  - Toxicity to various agents [Fatal]
